FAERS Safety Report 7544176 (Version 11)
Quarter: 2013Q1

REPORT INFORMATION
  Report Type: Spontaneous
  Country: US (occurrence: US)
  Receive Date: 20100817
  Receipt Date: 20130325
  Transmission Date: 20140127
  Serious: Yes (Other)
  Sender: FDA-Public Use
  Company Number: US-BAYER-201030290NA

PATIENT
  Sex: Male
  Weight: 74 kg

DRUGS (30)
  1. MAGNEVIST [Suspect]
     Indication: NUCLEAR MAGNETIC RESONANCE IMAGING
     Dosage: 20 ML, ONCE
     Route: 042
     Dates: start: 20030507, end: 20030507
  2. MAGNEVIST [Suspect]
     Indication: NUCLEAR MAGNETIC RESONANCE IMAGING
  3. OMNISCAN [Suspect]
     Indication: NUCLEAR MAGNETIC RESONANCE IMAGING BRAIN
     Dosage: 20 ML (DAILY DOSE), ONCE, INTRAVENOUS
     Route: 042
     Dates: start: 20020812, end: 20020812
  4. OMNISCAN [Suspect]
     Indication: NUCLEAR MAGNETIC RESONANCE IMAGING ABDOMINAL
     Dosage: 20 ML, ONCE
     Route: 042
     Dates: start: 20050606, end: 20050606
  5. NORVASC [Concomitant]
     Dosage: 10 MG, QD
  6. NITROPRUSSIDE SODIUM [Concomitant]
  7. LABETALOL [Concomitant]
     Dosage: 200 MG, BID
  8. ACCUPRIL [Concomitant]
     Dosage: 40 MG, QD
  9. CLONIDINE [Concomitant]
     Dosage: 0.2 MG, UNK
  10. NIFEDIPINE [Concomitant]
  11. PHENYTOIN [Concomitant]
     Dosage: 100 MG, UNK
  12. HYDRALAZINE [Concomitant]
  13. EPOETIN NOS [Concomitant]
  14. DIVALPROEX [Concomitant]
  15. PHOSLO [Concomitant]
     Dosage: 667 MG, TID WITH MEALS
  16. COUMADIN [Concomitant]
     Dosage: 0.2 MG, QAM AND QPM
  17. PROCARDIA XL [Concomitant]
     Dosage: 60 MG, QD
  18. MINOXIDIL [Concomitant]
     Dosage: 5 MG, BID
  19. NIFEDICAL XL [Concomitant]
     Dosage: 60 MG, UNK
  20. CARVEDILOL [Concomitant]
     Dosage: 25 MG, BID
  21. SENSIPAR [Concomitant]
     Dosage: 60 MG, QD
  22. HYOSCYAMINE SULFATE [Concomitant]
     Dosage: 0.125 MG, Q4HR
  23. LISINOPRIL [Concomitant]
     Dosage: 40 MG, BID
  24. SUCRALFATE [Concomitant]
     Dosage: 1 PILL BEFORE MEALS
  25. DICYCLOMINE [Concomitant]
     Dosage: 20 MG, BID
  26. LOPRESSOR [Concomitant]
     Dosage: 50 MG, QD
     Route: 048
  27. VALTREX [Concomitant]
  28. LOSARTAN [Concomitant]
     Dosage: 100 MG, QD
  29. RENAGEL [SEVELAMER] [Concomitant]
     Dosage: 800 MG, TID
  30. EPOGEN [Concomitant]
     Dosage: 10000 IU, UNK

REACTIONS (12)
  - Nephrogenic systemic fibrosis [None]
  - Musculoskeletal pain [None]
  - Pain in extremity [None]
  - Arthralgia [None]
  - Hypoaesthesia [None]
  - Dry skin [None]
  - Oedema [None]
  - Bone pain [None]
  - Hyperkeratosis [None]
  - Skin hyperpigmentation [None]
  - Pain [None]
  - Skin fibrosis [None]
